FAERS Safety Report 4350038-8 (Version None)
Quarter: 2004Q2

REPORT INFORMATION
  Report Type: 
  Country: None (occurrence: None)
  Receive Date: 20040429
  Receipt Date: 20040326
  Transmission Date: 20050107
  Serious: Yes (Hospitalization, Other)
  Sender: FDA-Public Use
  Company Number: PHNU2004DE01371

PATIENT
  Age: 75 Year
  Sex: Female
  Weight: 68 kg

DRUGS (3)
  1. ZOMETA [Suspect]
     Indication: MULTIPLE MYELOMA
     Dosage: 4 MG, QMO
     Route: 042
     Dates: start: 20021001, end: 20030101
  2. ZOMETA [Suspect]
     Dosage: 4 MG, QMO
     Route: 042
  3. MORPHINE SULFATE [Suspect]
     Indication: BONE PAIN
     Route: 048
     Dates: start: 20040301, end: 20040301

REACTIONS (9)
  - BLOOD CREATININE INCREASED [None]
  - BONE PAIN [None]
  - CAMPYLOBACTER INTESTINAL INFECTION [None]
  - DEHYDRATION [None]
  - DIALYSIS [None]
  - DIARRHOEA [None]
  - GASTROINTESTINAL INFECTION [None]
  - RENAL FAILURE ACUTE [None]
  - VOMITING [None]
